FAERS Safety Report 5587746-7 (Version None)
Quarter: 2008Q1

REPORT INFORMATION
  Report Type: 
  Country: None (occurrence: None)
  Receive Date: 20080108
  Receipt Date: 20071228
  Transmission Date: 20080703
  Serious: Yes (Hospitalization)
  Sender: FDA-Public Use
  Company Number: 2008SP000032

PATIENT
  Age: 56 Year
  Sex: Male

DRUGS (4)
  1. PEG-INTRON [Suspect]
     Indication: HEPATITIS C
     Dosage: SC
     Route: 058
     Dates: start: 20070813
  2. RIBASPHERE [Suspect]
     Indication: HEPATITIS C
     Dosage: PO
     Dates: start: 20070813
  3. LAMICTAL [Suspect]
     Indication: DEPRESSION
  4. PAXIL [Concomitant]

REACTIONS (7)
  - DISORIENTATION [None]
  - DYSSTASIA [None]
  - FALL [None]
  - INFLUENZA LIKE ILLNESS [None]
  - THINKING ABNORMAL [None]
  - THIRST [None]
  - TREMOR [None]
